FAERS Safety Report 8131364-3 (Version None)
Quarter: 2012Q1

REPORT INFORMATION
  Report Type: 
  Country: None (occurrence: None)
  Receive Date: 20120213
  Receipt Date: 20120206
  Transmission Date: 20120608
  Serious: Yes (Hospitalization)
  Sender: FDA-Public Use
  Company Number: US-BAYER-2011-059477

PATIENT
  Age: 16 Year
  Sex: Female
  Weight: 54.422 kg

DRUGS (4)
  1. YASMIN [Suspect]
     Dosage: UNK
     Dates: start: 20090601
  2. DROSPIRENONE AND ETHINYL ESTRADIOL [Suspect]
     Indication: PREMENSTRUAL SYNDROME
  3. LOTRAN [Concomitant]
     Dosage: 4 MG, UNK
     Route: 048
     Dates: start: 20091021
  4. PREVACID [Concomitant]
     Route: 048

REACTIONS (9)
  - VOMITING [None]
  - MENTAL DISORDER [None]
  - ANHEDONIA [None]
  - GALLBLADDER DISORDER [None]
  - ABDOMINAL PAIN UPPER [None]
  - ABDOMINAL PAIN [None]
  - NAUSEA [None]
  - IRRITABLE BOWEL SYNDROME [None]
  - ANXIETY [None]
